FAERS Safety Report 4556606-2 (Version None)
Quarter: 2005Q1

REPORT INFORMATION
  Report Type: 
  Country: None (occurrence: None)
  Receive Date: 20050114
  Receipt Date: 20050105
  Transmission Date: 20050727
  Serious: Yes (Other)
  Sender: FDA-Public Use
  Company Number: 2005006228

PATIENT
  Age: 75 Year
  Sex: Female
  Weight: 46.2669 kg

DRUGS (4)
  1. CELEBREX [Suspect]
     Indication: JOINT INJURY
  2. WARFARIN SODIUM [Suspect]
     Indication: MYOCARDIAL INFARCTION
     Dosage: ORAL
     Route: 048
  3. TORSEMIDE [Concomitant]
  4. POTASSIUM CHLORIDE [Concomitant]

REACTIONS (6)
  - AMNESIA [None]
  - CEREBRAL DISORDER [None]
  - COMA [None]
  - CONFUSIONAL STATE [None]
  - PLASMA VISCOSITY DECREASED [None]
  - PROTHROMBIN TIME PROLONGED [None]
